FAERS Safety Report 13097045 (Version 8)
Quarter: 2019Q2

REPORT INFORMATION
  Report Type: Spontaneous
  Country: US (occurrence: US)
  Receive Date: 20170109
  Receipt Date: 20190502
  Transmission Date: 20190711
  Serious: Yes (Other)
  Sender: FDA-Public Use
  Company Number: US-PFIZER INC-2017007587

PATIENT
  Age: 41 Year
  Sex: Female

DRUGS (2)
  1. XELJANZ [Suspect]
     Active Substance: TOFACITINIB CITRATE
     Indication: RHEUMATOID ARTHRITIS
     Dosage: 5 MG, 2X/DAY
     Route: 048
     Dates: start: 20161019, end: 201804
  2. XELJANZ [Suspect]
     Active Substance: TOFACITINIB CITRATE
     Dosage: 5 MG, 2X/DAY
     Route: 048
     Dates: start: 20161019, end: 201804

REACTIONS (7)
  - Fatigue [Not Recovered/Not Resolved]
  - Somnolence [Unknown]
  - Menopause [Unknown]
  - Rhinitis [Unknown]
  - Type 1 diabetes mellitus [Unknown]
  - Blindness unilateral [Unknown]
  - Eye injury [Unknown]

NARRATIVE: CASE EVENT DATE: 201610
